FAERS Safety Report 6488256-5 (Version None)
Quarter: 2009Q4

REPORT INFORMATION
  Report Type: 
  Country: None (occurrence: None)
  Receive Date: 20091210
  Receipt Date: 20091130
  Transmission Date: 20100525
  Serious: Yes (Hospitalization)
  Sender: FDA-Public Use
  Company Number: DE-AMGEN-UK361112

PATIENT
  Sex: Male
  Weight: 70 kg

DRUGS (6)
  1. NEULASTA [Suspect]
     Indication: DRUG USE FOR UNKNOWN INDICATION
     Route: 065
     Dates: end: 20090813
  2. ADRIAMYCIN PFS [Concomitant]
     Route: 065
     Dates: start: 20090420, end: 20090813
  3. ETOPOSIDE [Concomitant]
     Route: 065
     Dates: start: 20090420, end: 20090813
  4. CYCLOPHOSPHAMIDE [Concomitant]
     Route: 065
     Dates: start: 20090420, end: 20090813
  5. IFOSFAMIDE [Concomitant]
     Dates: start: 20090420, end: 20090813
  6. UNSPECIFIED HORMONE REPLACEMENT THERAPY AGENT [Concomitant]

REACTIONS (1)
  - FEBRILE NEUTROPENIA [None]
